FAERS Safety Report 16339349 (Version 2)
Quarter: 2019Q2

REPORT INFORMATION
  Report Type: Spontaneous
  Country: US (occurrence: US)
  Receive Date: 20190521
  Receipt Date: 20190628
  Transmission Date: 20190711
  Serious: Yes (Other)
  Sender: FDA-Public Use
  Company Number: US-PFIZER INC-2019212442

PATIENT
  Age: 28 Year
  Sex: Male

DRUGS (2)
  1. XELJANZ [Suspect]
     Active Substance: TOFACITINIB CITRATE
     Indication: DRUG ABUSE
     Dosage: 20 MG, 2X/DAY
     Route: 048
     Dates: start: 20190531
  2. XELJANZ [Suspect]
     Active Substance: TOFACITINIB CITRATE
     Indication: COLITIS ULCERATIVE
     Dosage: 5 MG, UNK

REACTIONS (3)
  - Haematochezia [Not Recovered/Not Resolved]
  - Muscle spasms [Unknown]
  - Bowel movement irregularity [Unknown]
